FAERS Safety Report 12750930 (Version 1)
Quarter: 2016Q3

REPORT INFORMATION
  Report Type: Spontaneous
  Country: ES (occurrence: ES)
  Receive Date: 20160916
  Receipt Date: 20160916
  Transmission Date: 20161109
  Serious: Yes (Hospitalization)
  Sender: FDA-Public Use
  Company Number: ES-ALLERGAN-1668445US

PATIENT
  Age: 87 Year
  Sex: Female

DRUGS (6)
  1. AZARGA [Interacting]
     Active Substance: BRINZOLAMIDE\TIMOLOL MALEATE
     Indication: GLAUCOMA
     Route: 047
     Dates: start: 20160112, end: 20160715
  2. AMLODIPIN [Concomitant]
     Active Substance: AMLODIPINE BESYLATE
     Dosage: 5, UNK
  3. GANFORT 0.3/5 [Suspect]
     Active Substance: BIMATOPROST\TIMOLOL
     Indication: GLAUCOMA
     Route: 047
     Dates: start: 2016, end: 20160715
  4. BISOPROLOL [Interacting]
     Active Substance: BISOPROLOL
     Indication: ATRIAL FIBRILLATION
     Dosage: 2 MG, QD
     Route: 048
     Dates: start: 20090903, end: 20160715
  5. ENALAPRIL [Concomitant]
     Active Substance: ENALAPRIL
     Dosage: 5, UNK
  6. TROMALYT [Concomitant]
     Active Substance: ASPIRIN
     Dosage: 150, UNK

REACTIONS (1)
  - Atrioventricular block complete [Recovered/Resolved]

NARRATIVE: CASE EVENT DATE: 20160715
